FAERS Safety Report 7514902-0 (Version None)
Quarter: 2011Q2

REPORT INFORMATION
  Report Type: 
  Country: None (occurrence: None)
  Receive Date: 20110601
  Receipt Date: 20110517
  Transmission Date: 20111010
  Serious: Yes (Hospitalization)
  Sender: FDA-Public Use
  Company Number: US-JNJFOC-20110205887

PATIENT
  Sex: Male
  Weight: 82.56 kg

DRUGS (14)
  1. REMICADE [Suspect]
     Route: 042
     Dates: start: 20091030, end: 20091030
  2. OMEPRAZOLE [Concomitant]
     Indication: CROHN'S DISEASE
  3. VITAMIN B-12 [Concomitant]
     Indication: CROHN'S DISEASE
  4. REMICADE [Suspect]
     Indication: CROHN'S DISEASE
     Route: 042
     Dates: start: 20101119
  5. REMICADE [Suspect]
     Route: 042
     Dates: start: 20100305
  6. FOLIC ACID [Concomitant]
     Indication: CROHN'S DISEASE
  7. ANTIHISTAMINES [Concomitant]
     Indication: PREMEDICATION
     Dates: start: 20021018
  8. STEROIDS NOS [Concomitant]
     Indication: PREMEDICATION
     Dates: start: 20100303
  9. STEROIDS NOS [Concomitant]
     Dates: start: 20091030
  10. REMICADE [Suspect]
     Route: 042
     Dates: start: 20090203, end: 20090203
  11. REMICADE [Suspect]
     Route: 042
     Dates: start: 20090606, end: 20090606
  12. ACETAMINOPHEN [Concomitant]
     Indication: PREMEDICATION
     Dates: start: 20021018
  13. IMODIUM [Concomitant]
     Indication: CROHN'S DISEASE
  14. REMICADE [Suspect]
     Route: 042
     Dates: start: 20020918, end: 20081103

REACTIONS (2)
  - ANAEMIA [None]
  - HAEMATOCHEZIA [None]
